FAERS Safety Report 9845292 (Version 1)
Quarter: 2014Q1

REPORT INFORMATION
  Report Type: Spontaneous
  Country: US (occurrence: US)
  Receive Date: 20140127
  Receipt Date: 20140127
  Transmission Date: 20141002
  Serious: No
  Sender: FDA-Public Use
  Company Number: US-BAUSCH-BL-2013-005942

PATIENT
  Age: 47 Year
  Sex: Female

DRUGS (2)
  1. ZYLET (LOTEPREDNOL ETABONATE 0.5% AND TOBRAMYCIN 0.3% OPHTHALMIC SUSPE [Suspect]
     Indication: CONJUNCTIVITIS
     Dosage: 1 DROP; ONCE DAILY; RIGHT EYE
     Route: 047
     Dates: start: 20131031, end: 20131101
  2. ZYLET (LOTEPREDNOL ETABONATE 0.5% AND TOBRAMYCIN 0.3% OPHTHALMIC SUSPE [Suspect]
     Dosage: 1 DROP; ONCE DAILY; LEFT EYE
     Route: 047
     Dates: start: 20131031, end: 20131101

REACTIONS (3)
  - Ocular hyperaemia [Recovering/Resolving]
  - Eye pruritus [Recovering/Resolving]
  - Eye irritation [Recovering/Resolving]
